FAERS Safety Report 17026085 (Version 2)
Quarter: 2019Q4

REPORT INFORMATION
  Report Type: Report from Study
  Country: US (occurrence: US)
  Receive Date: 20191113
  Receipt Date: 20191114
  Transmission Date: 20200122
  Serious: Yes (Other)
  Sender: FDA-Public Use
  Company Number: US-ASTRAZENECA-2019SF58259

PATIENT
  Age: 52 Year
  Sex: Female

DRUGS (2)
  1. OSIMERTINIB. [Suspect]
     Active Substance: OSIMERTINIB
     Indication: LUNG ADENOCARCINOMA
     Route: 048
  2. OSIMERTINIB. [Suspect]
     Active Substance: OSIMERTINIB
     Indication: LUNG ADENOCARCINOMA
     Route: 048

REACTIONS (7)
  - Prescribed overdose [Unknown]
  - Paronychia [Unknown]
  - Acquired gene mutation [Unknown]
  - Malignant neoplasm progression [Recovering/Resolving]
  - Thrombocytopenia [Unknown]
  - Rash [Unknown]
  - Drug resistance [Unknown]
